FAERS Safety Report 21625765 (Version 2)
Quarter: 2023Q1

REPORT INFORMATION
  Report Type: Report from Study
  Country: US (occurrence: US)
  Receive Date: 20221122
  Receipt Date: 20230117
  Transmission Date: 20230418
  Serious: Yes (Other)
  Sender: FDA-Public Use
  Company Number: US-ABBVIE-22K-163-4497643-00

PATIENT
  Age: 63 Year
  Sex: Female

DRUGS (3)
  1. CREON [Suspect]
     Active Substance: PANCRELIPASE AMYLASE\PANCRELIPASE LIPASE\PANCRELIPASE PROTEASE
     Indication: Product used for unknown indication
     Dosage: FORM STRENGTH: 36000 UNIT
     Route: 048
  2. MIRALAX [Concomitant]
     Active Substance: POLYETHYLENE GLYCOL 3350
     Indication: Product used for unknown indication
  3. LINZESS [Concomitant]
     Active Substance: LINACLOTIDE
     Indication: Product used for unknown indication

REACTIONS (24)
  - Toe operation [Unknown]
  - Decreased appetite [Unknown]
  - Sinusitis [Unknown]
  - Nerve compression [Unknown]
  - Respiratory syncytial virus infection [Unknown]
  - Constipation [Unknown]
  - Fatigue [Unknown]
  - Red blood cell count decreased [Unknown]
  - Irritable bowel syndrome [Unknown]
  - Spinal cord injury [Unknown]
  - Vitamin D decreased [Unknown]
  - Gallbladder disorder [Unknown]
  - Nervous system disorder [Unknown]
  - Swelling [Unknown]
  - Iron deficiency anaemia [Unknown]
  - Hypoaesthesia [Unknown]
  - Claustrophobia [Unknown]
  - Cough [Unknown]
  - Gastric disorder [Unknown]
  - Balance disorder [Unknown]
  - Bone pain [Unknown]
  - Liver disorder [Unknown]
  - Dyspepsia [Unknown]
  - COVID-19 [Unknown]

NARRATIVE: CASE EVENT DATE: 20220801
